FAERS Safety Report 8025898-X (Version None)
Quarter: 2012Q1

REPORT INFORMATION
  Report Type: 
  Country: None (occurrence: None)
  Receive Date: 20120105
  Receipt Date: 20110422
  Transmission Date: 20120608
  Serious: No
  Sender: FDA-Public Use
  Company Number: US-ABBOTT-11P-163-0721219-00

PATIENT
  Sex: Female
  Weight: 53.572 kg

DRUGS (3)
  1. DYNACIRC CR [Concomitant]
     Indication: PRODUCT USED FOR UNKNOWN INDICATION
  2. SYNTHROID [Suspect]
     Indication: HYPOTHYROIDISM
  3. TIMOLOL MALEATE [Concomitant]
     Indication: PRODUCT USED FOR UNKNOWN INDICATION

REACTIONS (1)
  - BLOOD THYROID STIMULATING HORMONE INCREASED [None]
